FAERS Safety Report 10408903 (Version 1)
Quarter: 2014Q1

REPORT INFORMATION
  Report Type: Spontaneous
  Country: US (occurrence: None)
  Receive Date: 20130702
  Receipt Date: 20130702
  Transmission Date: 20141002
  Serious: No
  Sender: FDA-Public Use
  Company Number: 411661H

PATIENT
  Age: 50 Year
  Sex: Female
  Weight: 79 kg

DRUGS (1)
  1. PACLITAXEL [Suspect]
     Indication: PRODUCT USED FOR UNKNOWN INDICATION
     Dosage: UNKNOWN, ONCE, UNKNOWN, INTRAVENOUS
     Route: 042
     Dates: start: 20091019, end: 20091019

REACTIONS (2)
  - Erythema [None]
  - Dyspnoea [None]
